FAERS Safety Report 5418827-6 (Version None)
Quarter: 2007Q3

REPORT INFORMATION
  Report Type: 
  Country: None (occurrence: None)
  Receive Date: 20070718
  Receipt Date: 20060803
  Transmission Date: 20080115
  Serious: Yes (Hospitalization, Other)
  Sender: FDA-Public Use
  Company Number: 2006089541

PATIENT
  Age: 50 Year
  Sex: Female
  Weight: 113.3993 kg

DRUGS (8)
  1. CELEBREX [Suspect]
     Indication: ARTHRITIS
     Dosage: 200 MG (100 MG, 2 IN 1 D)
     Dates: start: 20030513
  2. CELEBREX [Suspect]
     Indication: MUSCULOSKELETAL PAIN
     Dosage: 200 MG (100 MG, 2 IN 1 D)
     Dates: start: 20030513
  3. CELEBREX [Suspect]
     Indication: NECK PAIN
     Dosage: 200 MG (100 MG, 2 IN 1 D)
     Dates: start: 20030513
  4. CELEBREX [Suspect]
     Indication: PAIN IN EXTREMITY
     Dosage: 200 MG (100 MG, 2 IN 1 D)
     Dates: start: 20030513
  5. PREVACID [Concomitant]
  6. RHINOCORT [Concomitant]
  7. ZANAFLEX (TIZANDIDINE HYDROCHLORIDE) [Concomitant]
  8. DARVOCET [Concomitant]

REACTIONS (1)
  - MYOCARDIAL INFARCTION [None]
